FAERS Safety Report 19011791 (Version 1)
Quarter: 2021Q1

REPORT INFORMATION
  Report Type: Spontaneous
  Country: US (occurrence: US)
  Receive Date: 20210316
  Receipt Date: 20210316
  Transmission Date: 20210420
  Serious: No
  Sender: FDA-Public Use
  Company Number: None

PATIENT
  Age: 81 Year
  Sex: Female
  Weight: 55.8 kg

DRUGS (12)
  1. IBRANCE [Suspect]
     Active Substance: PALBOCICLIB
     Indication: BREAST CANCER FEMALE
     Dosage: ?          OTHER FREQUENCY:DAILY FOR 21/28 D;?
     Route: 048
     Dates: start: 20200519
  2. MAGNESIUM GLUCONATE [Concomitant]
     Active Substance: MAGNESIUM GLUCONATE
  3. ELIQUIS [Concomitant]
     Active Substance: APIXABAN
  4. LETROZOLE. [Concomitant]
     Active Substance: LETROZOLE
  5. TUMS [Concomitant]
     Active Substance: CALCIUM CARBONATE
  6. MULTIVITAMIN [Concomitant]
     Active Substance: VITAMINS
  7. SYMBICORT [Concomitant]
     Active Substance: BUDESONIDE\FORMOTEROL FUMARATE DIHYDRATE
  8. ALBUTEROL HFA [Concomitant]
     Active Substance: ALBUTEROL SULFATE
  9. METOPROLOL SUCCINATE. [Concomitant]
     Active Substance: METOPROLOL SUCCINATE
  10. TYLENOL EXTRA STRENGTH [Concomitant]
     Active Substance: ACETAMINOPHEN
  11. HYDROCHLOROTHIAZIDE. [Concomitant]
     Active Substance: HYDROCHLOROTHIAZIDE
  12. LEVOTHYROXINE. [Concomitant]
     Active Substance: LEVOTHYROXINE

REACTIONS (4)
  - Dry skin [None]
  - Pruritus [None]
  - Muscle spasms [None]
  - Alopecia [None]

NARRATIVE: CASE EVENT DATE: 20210316
